FAERS Safety Report 4392024-8 (Version None)
Quarter: 2004Q3

REPORT INFORMATION
  Report Type: 
  Country: None (occurrence: None)
  Receive Date: 20040708
  Receipt Date: 20040623
  Transmission Date: 20050211
  Serious: Yes (Other)
  Sender: FDA-Public Use
  Company Number: PHBS2004SE08522

PATIENT
  Age: 57 Year
  Sex: Female

DRUGS (1)
  1. CLOZAPINE [Suspect]

REACTIONS (5)
  - BALANCE DISORDER [None]
  - EOSINOPHILIA [None]
  - EOSINOPHILIC PNEUMONIA [None]
  - PYREXIA [None]
  - URINARY INCONTINENCE [None]
